FAERS Safety Report 13503416 (Version 1)
Quarter: 2017Q2

REPORT INFORMATION
  Report Type: Spontaneous
  Country: FR (occurrence: FR)
  Receive Date: 20170502
  Receipt Date: 20170502
  Transmission Date: 20170830
  Serious: Yes (Hospitalization)
  Sender: FDA-Public Use
  Company Number: FR-PFIZER INC-2017182302

PATIENT
  Age: 59 Year
  Sex: Female

DRUGS (6)
  1. LAROXYL [Concomitant]
     Active Substance: AMITRIPTYLINE
     Dosage: 10 GTT, DAILY
  2. PARACETAMOL [Concomitant]
     Active Substance: ACETAMINOPHEN
     Dosage: 1 G, 4X/DAY
  3. AMITRIPTYLINE [Concomitant]
     Active Substance: AMITRIPTYLINE
     Dosage: 50 MG, 1X/DAY
  4. AVLOCARDYL /00030001/ [Concomitant]
     Active Substance: PROPRANOLOL HYDROCHLORIDE
     Dosage: 0.5 DF, 2X/DAY
  5. INEXIUM /01479302/ [Concomitant]
     Active Substance: ESOMEPRAZOLE MAGNESIUM
     Dosage: 1 DF, DAILY
  6. RELPAX [Suspect]
     Active Substance: ELETRIPTAN HYDROBROMIDE
     Dosage: 1-2 DOSAGE FORMS DAILY
     Route: 048

REACTIONS (6)
  - Withdrawal syndrome [Unknown]
  - Nausea [Unknown]
  - Headache [Unknown]
  - Drug use disorder [Not Recovered/Not Resolved]
  - Tremor [Unknown]
  - Medication overuse headache [Recovering/Resolving]
